FAERS Safety Report 25811596 (Version 1)
Quarter: 2025Q3

REPORT INFORMATION
  Report Type: Spontaneous
  Country: EU (occurrence: EU)
  Receive Date: 20250917
  Receipt Date: 20250917
  Transmission Date: 20251020
  Serious: Yes (Other)
  Sender: TEVA
  Company Number: None

PATIENT
  Age: 57 Year
  Sex: Female
  Weight: 58 kg

DRUGS (2)
  1. ACITRETIN [Suspect]
     Active Substance: ACITRETIN
     Indication: Lymphomatoid papulosis
     Dosage: 10 MG EVERY OTHER DAY, 20 MG EVERY OTHER DAY, OR 15 MG/DAY ON AVERAGE, SORIATANE
     Route: 048
     Dates: start: 20250415, end: 20250725
  2. MAGNESIUM\PYRIDOXINE [Concomitant]
     Active Substance: MAGNESIUM\PYRIDOXINE
     Indication: Product used for unknown indication
     Route: 065

REACTIONS (4)
  - Depression [Recovering/Resolving]
  - Dissociative disorder [Recovering/Resolving]
  - Insomnia [Recovering/Resolving]
  - Suicidal ideation [Recovering/Resolving]

NARRATIVE: CASE EVENT DATE: 20250725
